FAERS Safety Report 5519968-5 (Version None)
Quarter: 2007Q4

REPORT INFORMATION
  Report Type: 
  Country: None (occurrence: None)
  Receive Date: 20071116
  Receipt Date: 20070111
  Transmission Date: 20080405
  Serious: No
  Sender: FDA-Public Use
  Company Number: US-BRISTOL-MYERS SQUIBB COMPANY-13639968

PATIENT
  Age: 60 Year
  Sex: Female

DRUGS (3)
  1. QUESTRAN [Suspect]
     Indication: BLOOD TRIGLYCERIDES INCREASED
     Dosage: DOSAGE FORM = PACKET
     Route: 048
     Dates: start: 20060901
  2. PHOSLO [Concomitant]
  3. TUMS [Concomitant]

REACTIONS (1)
  - BLOOD PHOSPHORUS INCREASED [None]
